FAERS Safety Report 25091886 (Version 1)
Quarter: 2025Q1

REPORT INFORMATION
  Report Type: Report from Study
  Country: US (occurrence: US)
  Receive Date: 20250318
  Receipt Date: 20250318
  Transmission Date: 20250409
  Serious: Yes (Hospitalization)
  Sender: JOHNSON AND JOHNSON
  Company Number: US-JNJFOC-20250300536

PATIENT
  Age: 48 Year
  Sex: Female
  Weight: 90.718 kg

DRUGS (3)
  1. VELETRI [Suspect]
     Active Substance: EPOPROSTENOL
     Indication: Pulmonary hypertension
     Route: 042
  2. OPSUMIT [Concomitant]
     Active Substance: MACITENTAN
  3. Adempas- [Concomitant]

REACTIONS (8)
  - Drug delivery system malfunction [Unknown]
  - Device occlusion [Unknown]
  - Chest pain [Unknown]
  - Erythema [Unknown]
  - Feeling hot [Unknown]
  - Cyst [Unknown]
  - Product administration interrupted [Unknown]
  - Underdose [Unknown]

NARRATIVE: CASE EVENT DATE: 20250101
